FAERS Safety Report 6820986-5 (Version None)
Quarter: 2010Q3

REPORT INFORMATION
  Report Type: 
  Country: None (occurrence: None)
  Receive Date: 20100707
  Receipt Date: 20070822
  Transmission Date: 20110219
  Serious: No
  Sender: FDA-Public Use
  Company Number: US-PFIZER INC-2007070422

PATIENT
  Sex: Female
  Weight: 59.09 kg

DRUGS (4)
  1. ZOLOFT [Suspect]
     Indication: DEPRESSION
     Dates: start: 20070817
  2. SEROQUEL [Concomitant]
  3. KLONOPIN [Concomitant]
  4. TEGRETOL [Concomitant]

REACTIONS (5)
  - ABDOMINAL PAIN [None]
  - AGITATION [None]
  - CONSTIPATION [None]
  - FAECES DISCOLOURED [None]
  - NAUSEA [None]
